FAERS Safety Report 5402742-8 (Version None)
Quarter: 2007Q3

REPORT INFORMATION
  Report Type: 
  Country: None (occurrence: None)
  Receive Date: 20070801
  Receipt Date: 20070723
  Transmission Date: 20080115
  Serious: Yes (Death, Hospitalization)
  Sender: FDA-Public Use
  Company Number: US-GENENTECH-243283

PATIENT
  Sex: Male
  Weight: 82.086 kg

DRUGS (2)
  1. BEVACIZUMAB [Suspect]
     Indication: SMALL CELL LUNG CANCER STAGE UNSPECIFIED
     Dosage: 823 MG, QOW
     Route: 042
     Dates: start: 20070130, end: 20070606
  2. PACLITAXEL [Suspect]
     Indication: SMALL CELL LUNG CANCER STAGE UNSPECIFIED
     Dosage: 90 MG/M2, UNK
     Route: 042
     Dates: start: 20070130, end: 20070606

REACTIONS (1)
  - TRACHEO-OESOPHAGEAL FISTULA [None]
